FAERS Safety Report 4597024-0 (Version None)
Quarter: 2005Q1

REPORT INFORMATION
  Report Type: 
  Country: None (occurrence: None)
  Receive Date: 20050228
  Receipt Date: 20050216
  Transmission Date: 20050727
  Serious: Yes (Hospitalization)
  Sender: FDA-Public Use
  Company Number: GXKR2005US00606

PATIENT
  Age: 54 Year
  Sex: Male

DRUGS (3)
  1. CAPTOPRIL [Suspect]
     Indication: AORTIC VALVE REPLACEMENT
     Dosage: 25MG, TID, ORAL
     Route: 048
  2. ASPIRIN [Concomitant]
  3. COUMADIN [Concomitant]

REACTIONS (4)
  - CARDIAC MURMUR [None]
  - HAEMOGLOBINAEMIA [None]
  - LEUKOPENIA [None]
  - LUPUS-LIKE SYNDROME [None]
